FAERS Safety Report 22066672 (Version 1)
Quarter: 2023Q1

REPORT INFORMATION
  Report Type: Spontaneous
  Country: CA (occurrence: CA)
  Receive Date: 20230306
  Receipt Date: 20230306
  Transmission Date: 20230418
  Serious: Yes (Other)
  Sender: FDA-Public Use
  Company Number: CA-TEVA-2023-CA-2861088

PATIENT
  Age: 55 Year
  Sex: Female

DRUGS (5)
  1. METHOTREXATE [Suspect]
     Active Substance: METHOTREXATE
     Indication: Rheumatoid arthritis
     Route: 065
  2. XELJANZ [Suspect]
     Active Substance: TOFACITINIB CITRATE
     Indication: Rheumatoid arthritis
     Dosage: 10 MILLIGRAM DAILY;
     Route: 048
  3. XELJANZ [Suspect]
     Active Substance: TOFACITINIB CITRATE
     Dosage: 10 MILLIGRAM DAILY;
     Route: 048
  4. FOLIC ACID [Concomitant]
     Active Substance: FOLIC ACID
     Indication: Product used for unknown indication
  5. LIPITOR [Concomitant]
     Active Substance: ATORVASTATIN CALCIUM
     Indication: Product used for unknown indication

REACTIONS (10)
  - Condition aggravated [Not Recovered/Not Resolved]
  - Dermatitis contact [Not Recovered/Not Resolved]
  - Dizziness [Not Recovered/Not Resolved]
  - Feeling hot [Not Recovered/Not Resolved]
  - Foot operation [Not Recovered/Not Resolved]
  - Herpes zoster [Not Recovered/Not Resolved]
  - Infection [Not Recovered/Not Resolved]
  - Limb operation [Not Recovered/Not Resolved]
  - Visual impairment [Not Recovered/Not Resolved]
  - Product dose omission in error [Not Recovered/Not Resolved]
